FAERS Safety Report 12619083 (Version 1)
Quarter: 2016Q3

REPORT INFORMATION
  Report Type: Report from Study
  Country: CA (occurrence: CA)
  Receive Date: 20160803
  Receipt Date: 20160803
  Transmission Date: 20161109
  Serious: Yes (Other)
  Sender: FDA-Public Use
  Company Number: CA-HLSUS-2016-CA-000225

PATIENT
  Age: 75 Year
  Sex: Female
  Weight: 43.5 kg

DRUGS (7)
  1. CLOZARIL [Suspect]
     Active Substance: CLOZAPINE
     Indication: BIPOLAR DISORDER
     Dosage: 112.5
     Route: 048
     Dates: start: 19980815, end: 20160612
  2. SYNTHROID [Concomitant]
     Active Substance: LEVOTHYROXINE SODIUM
     Dosage: 42.5 ID
     Route: 048
  3. IRON [Concomitant]
     Active Substance: IRON
  4. ATIVAN [Concomitant]
     Active Substance: LORAZEPAM
  5. LIPITOR [Concomitant]
     Active Substance: ATORVASTATIN CALCIUM
  6. LITHIUM. [Concomitant]
     Active Substance: LITHIUM
  7. INSULIN [Concomitant]
     Active Substance: INSULIN NOS
     Dosage: GLYCEMIC

REACTIONS (2)
  - General physical health deterioration [Unknown]
  - Off label use [None]
